FAERS Safety Report 9116495 (Version 2)
Quarter: 2013Q1

REPORT INFORMATION
  Report Type: Spontaneous
  Country: US (occurrence: US)
  Receive Date: 20130225
  Receipt Date: 20130329
  Transmission Date: 20140127
  Serious: Yes (Other)
  Sender: FDA-Public Use
  Company Number: PHEH2013US003270

PATIENT
  Sex: Female

DRUGS (14)
  1. NEORAL [Suspect]
     Indication: BLOOD PRESSURE
     Dosage: 25 MG, QID
     Route: 048
  2. LOPRESSOR [Suspect]
  3. PREDNISOLONE [Suspect]
     Indication: TRANSPLANT
  4. CALCIUM CHANNEL BLOCKERS [Suspect]
  5. COUMADINE [Concomitant]
  6. IMURAN [Concomitant]
  7. DIGOXIN [Concomitant]
  8. BABY ASPIRIN [Concomitant]
  9. MULTI-VITAMINS [Concomitant]
  10. PEPCID [Concomitant]
  11. TYLENOL [Concomitant]
  12. TURMERIC [Concomitant]
  13. LUTEIN [Concomitant]
     Indication: AGE-RELATED MACULAR DEGENERATION
  14. FOLIC ACID [Concomitant]

REACTIONS (9)
  - Type 2 diabetes mellitus [Unknown]
  - Myocardial infarction [Unknown]
  - Atrial fibrillation [Unknown]
  - Renal failure [Unknown]
  - Tinnitus [Unknown]
  - Pain in extremity [Unknown]
  - Blood homocysteine increased [Unknown]
  - Product quality issue [Unknown]
  - Blood pressure increased [Unknown]
